FAERS Safety Report 8974322 (Version 2)
Quarter: 2013Q2

REPORT INFORMATION
  Report Type: Report from Study
  Country: US (occurrence: US)
  Receive Date: 20121220
  Receipt Date: 20130424
  Transmission Date: 20140414
  Serious: Yes (Death, Hospitalization)
  Sender: FDA-Public Use
  Company Number: US-ASTELLAS-2012US012466

PATIENT
  Age: 63 Year
  Sex: Female
  Weight: 57 kg

DRUGS (2)
  1. ERLOTINIB TABLET [Suspect]
     Indication: METASTATIC RENAL CELL CARCINOMA
     Dosage: 150 MG, UID/QD
     Route: 048
  2. BEVACIZUMAB [Suspect]
     Indication: METASTATIC RENAL CELL CARCINOMA
     Dosage: 10 MG/KG, TWICE A WEEK
     Route: 065

REACTIONS (4)
  - Off label use [Unknown]
  - Septic shock [Fatal]
  - Gastrointestinal haemorrhage [Fatal]
  - Urinary tract infection [Unknown]
